FAERS Safety Report 8798016 (Version 1)
Quarter: 2012Q4

REPORT INFORMATION
  Report Type: Report from Study
  Country: GB (occurrence: GB)
  Receive Date: 20120919
  Receipt Date: 20120919
  Transmission Date: 20130627
  Serious: Yes (Death, Hospitalization)
  Sender: FDA-Public Use
  Company Number: GB-ROCHE-1117894

PATIENT
  Age: 75 Year
  Sex: Male
  Weight: 57.07 kg

DRUGS (6)
  1. MABTHERA [Suspect]
     Indication: NON-HODGKIN^S LYMPHOMA
     Dosage: 600 mg on day 1 of each 28 day cycle
     Route: 042
     Dates: start: 20120228, end: 20120319
  2. INOTUZUMAB OZOGAMICIN [Suspect]
     Indication: NON-HODGKIN^S LYMPHOMA
     Dosage: 2.97 mg on day 2 of each 28 Day cycle
     Route: 042
     Dates: start: 20120227, end: 20120319
  3. DOCUSATE SODIUM [Concomitant]
     Indication: CONSTIPATION
     Dosage: 200 mg
     Route: 065
     Dates: start: 2012
  4. SYMBICORT [Concomitant]
     Indication: ASTHMA
  5. ALLOPURINOL [Concomitant]
     Indication: PROPHYLAXIS
     Route: 065
     Dates: start: 20120227, end: 20120319
  6. ALLOPURINOL [Concomitant]
     Indication: TUMOUR LYSIS SYNDROME

REACTIONS (1)
  - Pneumonia [Fatal]
